FAERS Safety Report 6607758-1 (Version None)
Quarter: 2010Q1

REPORT INFORMATION
  Report Type: 
  Country: None (occurrence: None)
  Receive Date: 20100212
  Receipt Date: 20091222
  Transmission Date: 20100710
  Serious: No
  Sender: FDA-Public Use
  Company Number: 1000010930

PATIENT
  Age: 66 Year
  Sex: Female

DRUGS (9)
  1. SAVELLA [Suspect]
     Indication: FIBROMYALGIA
     Dosage: 6.25 MG (6.25 MG, 1 IN 1 D), ORAL; 12.5 MG (6.25 MG, 2 IN 1 D), ORAL; 25 MG (12.5 MG, 2 IN 1 D), ORA
     Route: 048
     Dates: start: 20091215, end: 20091216
  2. SAVELLA [Suspect]
     Indication: FIBROMYALGIA
     Dosage: 6.25 MG (6.25 MG, 1 IN 1 D), ORAL; 12.5 MG (6.25 MG, 2 IN 1 D), ORAL; 25 MG (12.5 MG, 2 IN 1 D), ORA
     Route: 048
     Dates: start: 20091217, end: 20091220
  3. SAVELLA [Suspect]
     Indication: FIBROMYALGIA
     Dosage: 6.25 MG (6.25 MG, 1 IN 1 D), ORAL; 12.5 MG (6.25 MG, 2 IN 1 D), ORAL; 25 MG (12.5 MG, 2 IN 1 D), ORA
     Route: 048
     Dates: start: 20091221
  4. TRAMADOL HCL [Suspect]
     Indication: PAIN
     Dosage: (100 MG), ORAL; 25 MG (12.5 MG, 2 IN 1 D), ORAL; 50 MG (50 MG, EVERY PM), ORAL
     Route: 048
     Dates: start: 20080101, end: 20091215
  5. TRAMADOL HCL [Suspect]
     Indication: PAIN
     Dosage: (100 MG), ORAL; 25 MG (12.5 MG, 2 IN 1 D), ORAL; 50 MG (50 MG, EVERY PM), ORAL
     Route: 048
     Dates: start: 20091215
  6. TRAMADOL HCL [Suspect]
     Indication: PAIN
     Dosage: (100 MG), ORAL; 25 MG (12.5 MG, 2 IN 1 D), ORAL; 50 MG (50 MG, EVERY PM), ORAL
     Route: 048
     Dates: start: 20091215
  7. MACROBID [Concomitant]
  8. TYLENOL-500 [Concomitant]
  9. AMBIEN [Concomitant]

REACTIONS (5)
  - ANXIETY [None]
  - ASTHENIA [None]
  - DIZZINESS [None]
  - NAUSEA [None]
  - VISION BLURRED [None]
